FAERS Safety Report 4965801-X (Version None)
Quarter: 2006Q2

REPORT INFORMATION
  Report Type: 
  Country: None (occurrence: None)
  Receive Date: 20060406
  Receipt Date: 20060406
  Transmission Date: 20061013
  Serious: Yes (Death)
  Sender: FDA-Public Use
  Company Number: None

PATIENT
  Age: 66 Year
  Sex: Female
  Weight: 76 kg

DRUGS (5)
  1. BIVALIRUDIN [Suspect]
     Indication: ATRIAL THROMBOSIS
     Dosage: SEE IMAGE
     Route: 042
     Dates: start: 20050930
  2. BIVALIRUDIN [Suspect]
     Indication: DEEP VEIN THROMBOSIS
     Dosage: SEE IMAGE
     Route: 042
     Dates: start: 20050930
  3. BIVALIRUDIN [Suspect]
     Indication: HEPARIN-INDUCED THROMBOCYTOPENIA
     Dosage: SEE IMAGE
     Route: 042
     Dates: start: 20050930
  4. BIVALIRUDIN [Suspect]
     Indication: PULMONARY ARTERY THROMBOSIS
     Dosage: SEE IMAGE
     Route: 042
     Dates: start: 20050930
  5. BIVALIRUDIN [Suspect]
     Indication: PULMONARY EMBOLISM
     Dosage: SEE IMAGE
     Route: 042
     Dates: start: 20050930

REACTIONS (6)
  - CARDIAC ARREST [None]
  - CARDIAC FAILURE [None]
  - COAGULATION TIME PROLONGED [None]
  - OXYGEN SATURATION DECREASED [None]
  - PULMONARY HAEMORRHAGE [None]
  - VENTRICULAR FIBRILLATION [None]
